FAERS Safety Report 26069498 (Version 1)
Quarter: 2025Q4

REPORT INFORMATION
  Report Type: Report from Study
  Country: EU (occurrence: EU)
  Receive Date: 20251120
  Receipt Date: 20251120
  Transmission Date: 20260117
  Serious: Yes (Hospitalization)
  Sender: RANBAXY
  Company Number: EU-SUN PHARMACEUTICAL INDUSTRIES INC-2025R1-537424

PATIENT

DRUGS (1)
  1. GLATIRAMER [Suspect]
     Active Substance: GLATIRAMER
     Indication: Multiple sclerosis relapse
     Dosage: UNK
     Route: 064

REACTIONS (5)
  - Respiratory syncytial virus infection [Unknown]
  - Bronchitis [Unknown]
  - COVID-19 [Unknown]
  - Hand-foot-and-mouth disease [Unknown]
  - Foetal exposure during pregnancy [Unknown]
